FAERS Safety Report 9943695 (Version 2)
Quarter: 2014Q1

REPORT INFORMATION
  Report Type: Spontaneous
  Country: US (occurrence: CA)
  Receive Date: 20140303
  Receipt Date: 20140313
  Transmission Date: 20141002
  Serious: Yes (Hospitalization)
  Sender: FDA-Public Use
  Company Number: US-MPIJNJ-2014MPI000573

PATIENT
  Sex: 0

DRUGS (3)
  1. VELCADE [Suspect]
     Indication: PLASMA CELL MYELOMA
     Dosage: 1.3 MG/M2, ON DAYS 1. 4, 8, 11 IN 21 DAY CYCLE
     Route: 058
     Dates: start: 20130705
  2. VELCADE [Suspect]
     Dosage: 1.0 MG/M2, EFFECTIVE FROM 05- CYCE
     Route: 058
     Dates: end: 20131216
  3. DEXAMETHASONE [Suspect]
     Indication: PLASMA CELL MYELOMA
     Dosage: 20 MG, ON DAYS 1, 2, 4, 5, 8, 9, 11, AND 12 IN 21 DAY CYCLE
     Route: 048
     Dates: start: 20130705, end: 20131217

REACTIONS (2)
  - Diarrhoea [Recovered/Resolved]
  - Hypovolaemia [Recovered/Resolved]
